FAERS Safety Report 13505082 (Version 1)
Quarter: 2017Q2

REPORT INFORMATION
  Report Type: Spontaneous
  Country: US (occurrence: US)
  Receive Date: 20170502
  Receipt Date: 20170502
  Transmission Date: 20170830
  Serious: Yes (Hospitalization, Other)
  Sender: FDA-Public Use
  Company Number: US-TARO-2016TAR00434

PATIENT
  Age: 70 Year
  Sex: Male

DRUGS (1)
  1. AMIODARONE HCL TABLET [Suspect]
     Active Substance: AMIODARONE HYDROCHLORIDE
     Indication: ATRIAL FIBRILLATION
     Dosage: UNK
     Dates: start: 201411, end: 201502

REACTIONS (13)
  - Asthenia [Unknown]
  - Restlessness [Unknown]
  - Wheezing [Unknown]
  - Off label use [Unknown]
  - Cough [Unknown]
  - Nervousness [Unknown]
  - Depression [Unknown]
  - Fatigue [Unknown]
  - Irritability [Unknown]
  - Idiopathic pulmonary fibrosis [Unknown]
  - Dyspnoea [Unknown]
  - Toxicity to various agents [Unknown]
  - Disturbance in attention [Unknown]

NARRATIVE: CASE EVENT DATE: 2014
